FAERS Safety Report 7543468-4 (Version None)
Quarter: 2011Q2

REPORT INFORMATION
  Report Type: 
  Country: None (occurrence: None)
  Receive Date: 20110613
  Receipt Date: 20110531
  Transmission Date: 20111010
  Serious: Yes (Other)
  Sender: FDA-Public Use
  Company Number: PHHY2011JP47485

PATIENT
  Sex: Male

DRUGS (3)
  1. TASIGNA [Suspect]
     Indication: CHRONIC MYELOID LEUKAEMIA
     Dosage: 400 MG, DAILY
     Route: 048
     Dates: start: 20090812, end: 20091006
  2. TASIGNA [Suspect]
     Dosage: 600 MG, DAILY
     Route: 048
     Dates: start: 20091007, end: 20091104
  3. PREDNISOLONE [Concomitant]
     Indication: PAPULE
     Dosage: 5 MG, UNK
     Route: 048
     Dates: start: 20070926

REACTIONS (1)
  - BLOOD CREATINE PHOSPHOKINASE INCREASED [None]
